FAERS Safety Report 7149326-1 (Version None)
Quarter: 2010Q4

REPORT INFORMATION
  Report Type: 
  Country: None (occurrence: None)
  Receive Date: 20101209
  Receipt Date: 20101202
  Transmission Date: 20110411
  Serious: Yes (Hospitalization, Other)
  Sender: FDA-Public Use
  Company Number: AT-ABBOTT-10P-009-0689011-00

PATIENT
  Sex: Female
  Weight: 89 kg

DRUGS (5)
  1. HUMIRA [Suspect]
     Indication: PSORIATIC ARTHROPATHY
     Route: 058
     Dates: start: 20100101, end: 20101101
  2. AQUAPHORIL [Concomitant]
     Indication: PSORIATIC ARTHROPATHY
     Dosage: 1-0-0
     Route: 048
  3. EBETREXAT [Concomitant]
     Indication: PSORIATIC ARTHROPATHY
     Dosage: STARTED INTRAMUSCULAR LATER PER ORAL
  4. FOLSAN [Concomitant]
     Indication: PSORIATIC ARTHROPATHY
     Route: 048
  5. CAL-D-VITA [Concomitant]
     Indication: PSORIATIC ARTHROPATHY
     Dosage: 1-0-1
     Route: 048

REACTIONS (2)
  - DEMYELINATION [None]
  - INFLAMMATION [None]
